FAERS Safety Report 7704646-4 (Version None)
Quarter: 2011Q3

REPORT INFORMATION
  Report Type: 
  Country: None (occurrence: None)
  Receive Date: 20110823
  Receipt Date: 20110816
  Transmission Date: 20111222
  Serious: Yes (Other)
  Sender: FDA-Public Use
  Company Number: FR-GLAXOSMITHKLINE-B0739982A

PATIENT
  Sex: Female
  Weight: 65 kg

DRUGS (21)
  1. TOPOTECAN [Suspect]
     Indication: OVARIAN CANCER
     Dosage: 8.5MGM2 PER DAY
     Route: 042
     Dates: start: 20110606
  2. CARBOPLATIN [Suspect]
     Indication: OVARIAN CANCER
     Route: 042
     Dates: start: 20110606
  3. ZOFRAN [Concomitant]
     Route: 042
     Dates: start: 20110605, end: 20110615
  4. PANTOPRAZOLE SODIUM [Concomitant]
     Route: 042
     Dates: start: 20110605, end: 20110702
  5. ROCEPHIN [Concomitant]
     Route: 048
     Dates: start: 20110610, end: 20110610
  6. ACETAMINOPHEN [Concomitant]
     Route: 048
     Dates: start: 20110607, end: 20110607
  7. UNSPECIFIED MEDICATION [Concomitant]
     Route: 048
     Dates: start: 20110608, end: 20110611
  8. PLITICAN [Concomitant]
     Route: 042
     Dates: start: 20110610
  9. IMODIUM [Concomitant]
     Route: 048
     Dates: start: 20110608, end: 20110613
  10. DEXANE [Concomitant]
  11. FLUCONAZOLE [Concomitant]
     Route: 042
     Dates: start: 20110605, end: 20110701
  12. FLAGYL [Concomitant]
     Route: 042
     Dates: start: 20110610
  13. CHLORPROMAZINE HCL [Concomitant]
     Route: 042
     Dates: start: 20110610, end: 20110614
  14. AMIKACIN [Concomitant]
     Route: 042
     Dates: start: 20110612, end: 20110627
  15. VALACYCLOVIR HYDROCHLORIDE [Concomitant]
     Route: 042
     Dates: start: 20110605
  16. VALPROIC ACID [Concomitant]
     Route: 048
     Dates: start: 20110605, end: 20110610
  17. VANCOMYCIN [Concomitant]
     Route: 042
     Dates: start: 20110610, end: 20110629
  18. TIORFAN [Concomitant]
     Route: 048
     Dates: start: 20110610, end: 20110617
  19. DEPAKENE [Concomitant]
     Route: 042
     Dates: start: 20110610, end: 20110628
  20. PIPERACILLIN AND TAZOBACTAM [Concomitant]
     Route: 042
     Dates: start: 20110612, end: 20110620
  21. TRAMADOL HCL [Concomitant]
     Route: 042
     Dates: start: 20110615, end: 20110617

REACTIONS (1)
  - ISCHAEMIA [None]
